FAERS Safety Report 7283961-5 (Version None)
Quarter: 2011Q1

REPORT INFORMATION
  Report Type: 
  Country: None (occurrence: None)
  Receive Date: 20110131
  Receipt Date: 20101231
  Transmission Date: 20110831
  Serious: Yes (Death)
  Sender: FDA-Public Use
  Company Number: AUR-APL-2011-00171

PATIENT
  Age: 35 Year
  Sex: Female

DRUGS (5)
  1. CYCLOBENZAPRINE [Suspect]
  2. OXYCODONE [Suspect]
  3. VENLAFAXINE HCL [Suspect]
  4. HYDROMORPHONE [Suspect]
  5. DIPHENHYDRAMINE [Suspect]

REACTIONS (1)
  - TOXICITY TO VARIOUS AGENTS [None]
